FAERS Safety Report 16242373 (Version 1)
Quarter: 2019Q2

REPORT INFORMATION
  Report Type: Spontaneous
  Country: US (occurrence: US)
  Receive Date: 20190322
  Receipt Date: 20190322
  Transmission Date: 20190711
  Serious: No
  Sender: FDA-Public Use
  Company Number: None

PATIENT
  Sex: Male

DRUGS (1)
  1. HUMIRA [Suspect]
     Active Substance: ADALIMUMAB
     Indication: RECTAL ABSCESS
     Route: 058
     Dates: start: 20190122

REACTIONS (6)
  - Diarrhoea [None]
  - Muscle spasms [None]
  - Mood swings [None]
  - Arthralgia [None]
  - Dyspnoea [None]
  - Fatigue [None]
